FAERS Safety Report 24885332 (Version 1)
Quarter: 2025Q1

REPORT INFORMATION
  Report Type: Spontaneous
  Country: ES (occurrence: ES)
  Receive Date: 20250124
  Receipt Date: 20250124
  Transmission Date: 20250409
  Serious: Yes (Life-Threatening, Hospitalization)
  Sender: ORGANON
  Company Number: None

PATIENT
  Age: 74 Year
  Sex: Male

DRUGS (5)
  1. MIRTAZAPINE [Suspect]
     Active Substance: MIRTAZAPINE
     Dosage: 0-0-1 (30 TABLETS)
     Route: 048
     Dates: start: 20240728, end: 20241003
  2. ARIPIPRAZOLE [Suspect]
     Active Substance: ARIPIPRAZOLE
     Dosage: 1CP DIA (28 CAPSULES)
     Route: 048
     Dates: start: 20240728, end: 20241003
  3. FLUVOXAMINE MALEATE [Suspect]
     Active Substance: FLUVOXAMINE MALEATE
     Dosage: CHRONIC 1 AT LUNCH,1,5 WHEN GO TO BED (20 SLOTTED COATED TABLETS)
     Route: 048
     Dates: start: 20241003
  4. FUROSEMIDE [Suspect]
     Active Substance: FUROSEMIDE
     Indication: Oedema peripheral
     Dosage: 40 MILLIGRAM, AS NECESSARY
     Route: 048
     Dates: start: 202410, end: 20241012
  5. FUROSEMIDE [Suspect]
     Active Substance: FUROSEMIDE
     Indication: Self-medication

REACTIONS (3)
  - Hyponatraemia [Recovered/Resolved]
  - Metabolic encephalopathy [Recovered/Resolved]
  - Status epilepticus [Recovered/Resolved]

NARRATIVE: CASE EVENT DATE: 20241012
